FAERS Safety Report 11893613 (Version 1)
Quarter: 2016Q1

REPORT INFORMATION
  Report Type: Spontaneous
  Country: IT (occurrence: IT)
  Receive Date: 20160106
  Receipt Date: 20160106
  Transmission Date: 20160526
  Serious: Yes (Other)
  Sender: FDA-Public Use
  Company Number: IT-ABBVIE-16P-083-1531894-00

PATIENT
  Age: 63 Year
  Sex: Male

DRUGS (2)
  1. RIBAVIRIN. [Suspect]
     Active Substance: RIBAVIRIN
     Indication: HEPATITIS C
     Dosage: DAILY
     Route: 048
     Dates: start: 20141003, end: 20150107
  2. PEGINTERFERON ALFA-2B [Suspect]
     Active Substance: PEGINTERFERON ALFA-2B
     Indication: HEPATITIS C
     Route: 058
     Dates: start: 20141003, end: 20150107

REACTIONS (3)
  - Pneumonitis [Unknown]
  - Urinary tract infection [Unknown]
  - Pruritus [Unknown]

NARRATIVE: CASE EVENT DATE: 20150107
